FAERS Safety Report 9916679 (Version 1)
Quarter: 2014Q1

REPORT INFORMATION
  Report Type: Report from Study
  Country: US (occurrence: US)
  Receive Date: 20140221
  Receipt Date: 20140221
  Transmission Date: 20141002
  Serious: Yes (Hospitalization, Other)
  Sender: FDA-Public Use
  Company Number: US-US-EMD SERONO, INC.-7270615

PATIENT
  Age: 10 Year
  Sex: Male
  Weight: 26 kg

DRUGS (4)
  1. SAIZEN [(SOMATROPIN (RDNA ORIGIN) FOR INJECTION)] [Suspect]
     Indication: CHARGE SYNDROME
     Route: 058
     Dates: start: 20090531
  2. SAIZEN [(SOMATROPIN (RDNA ORIGIN) FOR INJECTION)] [Suspect]
     Indication: BODY HEIGHT BELOW NORMAL
  3. PREVACID [Concomitant]
     Indication: GASTROOESOPHAGEAL REFLUX DISEASE
     Route: 048
  4. FLOVENT HFA [Concomitant]
     Indication: BRONCHIAL HYPERREACTIVITY
     Dosage: 44 MICROGRAM PER ACTUAL INHALATION

REACTIONS (10)
  - Pneumonia [Unknown]
  - Deafness [Recovering/Resolving]
  - Hemiparesis [Unknown]
  - Asthma [Not Recovered/Not Resolved]
  - Abnormal behaviour [Recovering/Resolving]
  - Vomiting [Unknown]
  - Enuresis [Unknown]
  - Hypogonadism [Unknown]
  - Nausea [Unknown]
  - Headache [Unknown]
